FAERS Safety Report 14776157 (Version 1)
Quarter: 2018Q2

REPORT INFORMATION
  Report Type: Spontaneous
  Country: GB (occurrence: GB)
  Receive Date: 20180418
  Receipt Date: 20180418
  Transmission Date: 20180711
  Serious: Yes (Other)
  Sender: FDA-Public Use
  Company Number: GB-CANTON LABORATORIES, LLC-2045968

PATIENT
  Age: 43 Year
  Sex: Female
  Weight: 62 kg

DRUGS (1)
  1. NAPROSYN [Suspect]
     Active Substance: NAPROXEN
     Indication: INFLAMMATION
     Route: 048
     Dates: start: 20180127, end: 20180212

REACTIONS (5)
  - Dermatitis [Recovered/Resolved]
  - Joint swelling [Recovered/Resolved]
  - Rash pustular [Unknown]
  - Dry skin [Unknown]
  - Purpura [Unknown]

NARRATIVE: CASE EVENT DATE: 20180201
